FAERS Safety Report 4332211-8 (Version None)
Quarter: 2004Q1

REPORT INFORMATION
  Report Type: 
  Country: None (occurrence: None)
  Receive Date: 20040325
  Receipt Date: 20040219
  Transmission Date: 20041129
  Serious: No
  Sender: FDA-Public Use
  Company Number: US_0402101041

PATIENT
  Age: 76 Year
  Sex: Female

DRUGS (2)
  1. FORTEO [Suspect]
     Indication: OSTEOPOROSIS
     Dates: start: 20040217
  2. CITRACAL WITH VITAMIN D [Concomitant]

REACTIONS (2)
  - ACCIDENTAL NEEDLE STICK [None]
  - MEDICATION ERROR [None]
